FAERS Safety Report 4847729-9 (Version None)
Quarter: 2005Q4

REPORT INFORMATION
  Report Type: 
  Country: None (occurrence: None)
  Receive Date: 20051205
  Receipt Date: 20051121
  Transmission Date: 20060501
  Serious: Yes (Hospitalization)
  Sender: FDA-Public Use
  Company Number: 219681

PATIENT
  Age: 49 Year
  Sex: Male

DRUGS (7)
  1. RITUXAN [Suspect]
     Indication: DIFFUSE LARGE B-CELL LYMPHOMA
     Dosage: 710 MG, INTRAVENOUS
     Route: 042
     Dates: start: 20040722
  2. PIRARUBICIN (PIRARUBICIN) [Concomitant]
  3. CYCLOPHOSPHAMIDE [Concomitant]
  4. VINCRISTINE [Concomitant]
  5. PREDNISONE [Concomitant]
  6. LAMIVUDINE [Concomitant]
  7. G-CSF (FILGRASTIM) [Concomitant]

REACTIONS (2)
  - DEEP VEIN THROMBOSIS [None]
  - PANCYTOPENIA [None]
